FAERS Safety Report 19880150 (Version 2)
Quarter: 2021Q3

REPORT INFORMATION
  Report Type: Report from Study
  Country: EG (occurrence: EG)
  Receive Date: 20210924
  Receipt Date: 20210930
  Transmission Date: 20211014
  Serious: Yes (Other)
  Sender: FDA-Public Use
  Company Number: NVSC2021EG211447

PATIENT
  Age: 69 Year
  Sex: Male

DRUGS (2)
  1. COSENTYX [Suspect]
     Active Substance: SECUKINUMAB
     Indication: PSORIASIS
     Dosage: 150 MG, QW FOR 5 WEEKS
     Route: 058
     Dates: start: 202104
  2. COSENTYX [Suspect]
     Active Substance: SECUKINUMAB
     Dosage: 150 MG, QMO
     Route: 058

REACTIONS (13)
  - Haemorrhoids [Unknown]
  - Skin exfoliation [Not Recovered/Not Resolved]
  - Product dose omission issue [Not Recovered/Not Resolved]
  - Internal haemorrhage [Recovered/Resolved]
  - Drug ineffective [Not Recovered/Not Resolved]
  - Pain [Not Recovered/Not Resolved]
  - Counterfeit product administered [Not Recovered/Not Resolved]
  - Pruritus [Not Recovered/Not Resolved]
  - Product outer packaging issue [Unknown]
  - Gastric ulcer [Recovered/Resolved]
  - Psoriasis [Not Recovered/Not Resolved]
  - Hepatic pain [Unknown]
  - Rash [Not Recovered/Not Resolved]

NARRATIVE: CASE EVENT DATE: 202108
